FAERS Safety Report 7668450-8 (Version None)
Quarter: 2011Q3

REPORT INFORMATION
  Report Type: 
  Country: None (occurrence: None)
  Receive Date: 20110808
  Receipt Date: 20110804
  Transmission Date: 20111222
  Serious: Yes (Hospitalization)
  Sender: FDA-Public Use
  Company Number: DE-BAYER-2011-069228

PATIENT
  Age: 70 Year
  Sex: Male
  Weight: 112 kg

DRUGS (1)
  1. SORAFENIB (RAF KINASE INHIBITOR) [Suspect]
     Dosage: 400 MG, BID
     Dates: end: 20110804

REACTIONS (2)
  - HEPATIC FUNCTION ABNORMAL [None]
  - GENERAL PHYSICAL HEALTH DETERIORATION [None]
